FAERS Safety Report 24667373 (Version 1)
Quarter: 2024Q4

REPORT INFORMATION
  Report Type: Spontaneous
  Country: US (occurrence: US)
  Receive Date: 20241126
  Receipt Date: 20241126
  Transmission Date: 20250115
  Serious: No
  Sender: LABORATOIRES SERB
  Company Number: US-SERB S.A.S.-2166010

PATIENT

DRUGS (1)
  1. CROFAB [Suspect]
     Active Substance: AGKISTRODON PISCIVORUS IMMUNE FAB ANTIVENIN (OVINE)\CROTALUS ADAMANTEUS IMMUNE FAB ANTIVENIN (OVINE)
     Indication: Snake bite

REACTIONS (4)
  - Incorrect dose administered [Unknown]
  - Product compounding quality issue [Unknown]
  - Product preparation issue [Unknown]
  - Poor quality product administered [Unknown]
